FAERS Safety Report 15748896 (Version 1)
Quarter: 2018Q4

REPORT INFORMATION
  Report Type: Spontaneous
  Country: US (occurrence: US)
  Receive Date: 20181219
  Receipt Date: 20181219
  Transmission Date: 20190205
  Serious: Yes (Other)
  Sender: FDA-Public Use
  Company Number: None

PATIENT
  Age: 52 Year
  Sex: Female

DRUGS (15)
  1. INDO KRATOM [Suspect]
     Active Substance: MITRAGYNINE\HERBALS
     Indication: ANXIETY
     Route: 048
     Dates: start: 20180202, end: 20181213
  2. INDO KRATOM [Suspect]
     Active Substance: MITRAGYNINE\HERBALS
     Indication: PAIN
  3. RED VEIN KRATOM [Suspect]
     Active Substance: MITRAGYNINE\HERBALS
     Indication: ANXIETY
     Route: 048
     Dates: start: 20180202, end: 20181213
  4. INDO KRATOM [Suspect]
     Active Substance: MITRAGYNINE\HERBALS
     Indication: DEPRESSION
  5. BALI KRATOM [Suspect]
     Active Substance: MITRAGYNINE\HERBALS
     Indication: ANXIETY
     Route: 048
     Dates: start: 20180202, end: 20181213
  6. BALI KRATOM [Suspect]
     Active Substance: MITRAGYNINE\HERBALS
     Indication: PAIN
  7. TRAZODONE [Concomitant]
     Active Substance: TRAZODONE HYDROCHLORIDE
  8. SERTRALINE [Concomitant]
     Active Substance: SERTRALINE HYDROCHLORIDE
  9. BALI KRATOM [Suspect]
     Active Substance: MITRAGYNINE\HERBALS
     Indication: DEPRESSION
  10. TRAIN WRECK KRATOM [Suspect]
     Active Substance: MITRAGYNINE\HERBALS
     Indication: ANXIETY
     Route: 048
     Dates: start: 20180202, end: 20181213
  11. TRAIN WRECK KRATOM [Suspect]
     Active Substance: MITRAGYNINE\HERBALS
     Indication: PAIN
  12. RED VEIN KRATOM [Suspect]
     Active Substance: MITRAGYNINE\HERBALS
     Indication: DEPRESSION
  13. RED VEIN KRATOM [Suspect]
     Active Substance: MITRAGYNINE\HERBALS
     Indication: PAIN
  14. TRAIN WRECK KRATOM [Suspect]
     Active Substance: MITRAGYNINE\HERBALS
     Indication: DEPRESSION
  15. GABAPENTIN. [Concomitant]
     Active Substance: GABAPENTIN

REACTIONS (9)
  - Night sweats [None]
  - Anxiety [None]
  - Bone pain [None]
  - Weight decreased [None]
  - Decreased appetite [None]
  - Depression [None]
  - Arthralgia [None]
  - Tremor [None]
  - Withdrawal syndrome [None]

NARRATIVE: CASE EVENT DATE: 20181213
